FAERS Safety Report 9961668 (Version 1)
Quarter: 2014Q1

REPORT INFORMATION
  Report Type: Report from Study
  Country: US (occurrence: US)
  Receive Date: 20140305
  Receipt Date: 20140305
  Transmission Date: 20141002
  Serious: No
  Sender: FDA-Public Use
  Company Number: US-ABBVIE-13P-163-1110934-00

PATIENT
  Age: 83 Year
  Sex: Female

DRUGS (7)
  1. HUMIRA [Suspect]
     Indication: CROHN^S DISEASE
     Dates: start: 20130131
  2. UNKNOWN DIARRHEA PILLS [Concomitant]
     Indication: DIARRHOEA
     Dosage: AT BEDTIME
     Route: 048
  3. METFORMIN [Concomitant]
     Indication: DIABETES MELLITUS
     Dosage: 500 MG DAILY
     Route: 048
  4. VITAMIN B12 [Concomitant]
     Indication: CROHN^S DISEASE
     Dosage: DAILY
     Route: 048
  5. VITAMIN B12 [Concomitant]
     Indication: ANAEMIA
  6. ATENOLOL [Concomitant]
     Indication: HYPERTENSION
     Dosage: 50 MG DAILY
     Route: 048
  7. GLYBURIDE [Concomitant]
     Indication: DIABETES MELLITUS
     Dosage: 40 MG DAILY
     Route: 048

REACTIONS (2)
  - Injection site pain [Recovering/Resolving]
  - Injection site bruising [Recovered/Resolved]
